FAERS Safety Report 23617255 (Version 1)
Quarter: 2024Q1

REPORT INFORMATION
  Report Type: Report from Study
  Country: US (occurrence: US)
  Receive Date: 20240311
  Receipt Date: 20240311
  Transmission Date: 20240410
  Serious: Yes (Hospitalization)
  Sender: FDA-Public Use
  Company Number: US-GILEAD-2024-0665009

PATIENT
  Sex: Female

DRUGS (6)
  1. AMBRISENTAN [Suspect]
     Active Substance: AMBRISENTAN
     Indication: Pulmonary hypertension
     Dosage: 10 MG, QD
     Route: 065
     Dates: start: 20200408
  2. UPTRAVI [Concomitant]
     Active Substance: SELEXIPAG
  3. XARELTO [Concomitant]
     Active Substance: RIVAROXABAN
  4. TADALAFIL [Concomitant]
     Active Substance: TADALAFIL
  5. VELETRI [Concomitant]
     Active Substance: EPOPROSTENOL
  6. FLOLAN [Concomitant]
     Active Substance: EPOPROSTENOL SODIUM

REACTIONS (1)
  - Cardiac procedure complication [Unknown]
